FAERS Safety Report 6740804-3 (Version None)
Quarter: 2010Q2

REPORT INFORMATION
  Report Type: 
  Country: None (occurrence: None)
  Receive Date: 20100525
  Receipt Date: 20100525
  Transmission Date: 20101027
  Serious: No
  Sender: FDA-Public Use
  Company Number: None

PATIENT
  Sex: Male
  Weight: 76.8 kg

DRUGS (6)
  1. PEG-L-ASPARAGINASE (K-H) [Suspect]
     Dosage: 5175 IU
  2. VINCRISTINE SULFATE [Suspect]
     Dosage: 8 MG
  3. ALLOPURINOL [Suspect]
     Dosage: 3000 MG
  4. CYTARABINE [Suspect]
     Dosage: 70 MG
  5. DAUNORUBICIN HCL [Suspect]
     Dosage: 200 MG
  6. METHOTREXATE [Suspect]
     Dosage: 30 MG

REACTIONS (5)
  - BLOOD CHOLESTEROL ABNORMAL [None]
  - BLOOD TRIGLYCERIDES ABNORMAL [None]
  - FATIGUE [None]
  - HEADACHE [None]
  - VOMITING [None]
